FAERS Safety Report 6213859-2 (Version None)
Quarter: 2009Q2

REPORT INFORMATION
  Report Type: 
  Country: None (occurrence: None)
  Receive Date: 20090602
  Receipt Date: 20090602
  Transmission Date: 20091009
  Serious: Yes (Other)
  Sender: FDA-Public Use
  Company Number: None

PATIENT
  Age: 54 Year
  Sex: Male
  Weight: 90.7194 kg

DRUGS (4)
  1. LAMICTAL [Suspect]
     Indication: BIPOLAR I DISORDER
     Dosage: 2 QD PO
     Route: 048
     Dates: start: 20090501, end: 20090522
  2. DEPAKOTE ER [Concomitant]
  3. AMBIEN [Concomitant]
  4. RITALIN [Concomitant]

REACTIONS (2)
  - LYMPHADENOPATHY [None]
  - PYREXIA [None]
